FAERS Safety Report 9070964 (Version 1)
Quarter: 2013Q1

REPORT INFORMATION
  Report Type: Report from Study
  Country: JP (occurrence: JP)
  Receive Date: 20130129
  Receipt Date: 20130129
  Transmission Date: 20140127
  Serious: Yes (Other)
  Sender: FDA-Public Use
  Company Number: JP-GLAXOSMITHKLINE-B0860288A

PATIENT
  Age: 57 Year
  Sex: Female

DRUGS (16)
  1. LAMICTAL [Suspect]
     Indication: GRAND MAL CONVULSION
     Dosage: 25MG ALTERNATE DAYS
     Route: 048
     Dates: start: 20100312, end: 20100325
  2. LAMICTAL [Suspect]
     Indication: GRAND MAL CONVULSION
     Dosage: 25MG PER DAY
     Route: 048
     Dates: start: 20100326, end: 20100408
  3. LAMICTAL [Suspect]
     Indication: GRAND MAL CONVULSION
     Dosage: 50MG PER DAY
     Route: 048
     Dates: start: 20100409, end: 20100506
  4. LAMICTAL [Suspect]
     Indication: GRAND MAL CONVULSION
     Dosage: 37.5MG TWICE PER DAY
     Route: 048
     Dates: start: 20100507, end: 20100610
  5. LAMICTAL [Suspect]
     Indication: GRAND MAL CONVULSION
     Dosage: 50MG TWICE PER DAY
     Route: 048
     Dates: start: 20100611, end: 20100715
  6. LAMICTAL [Suspect]
     Indication: GRAND MAL CONVULSION
     Dosage: 75MG TWICE PER DAY
     Route: 048
     Dates: start: 20100716
  7. ALEVIATIN [Concomitant]
     Indication: GRAND MAL CONVULSION
     Route: 048
     Dates: end: 20100506
  8. ALEVIATIN [Concomitant]
     Indication: GRAND MAL CONVULSION
     Route: 048
     Dates: start: 20100507
  9. DEPAKENE-R [Concomitant]
     Indication: GRAND MAL CONVULSION
     Route: 048
  10. RIVOTRIL [Concomitant]
     Indication: GRAND MAL CONVULSION
     Route: 048
  11. DIAZEPAM [Concomitant]
     Indication: GRAND MAL CONVULSION
     Route: 048
  12. SM [Concomitant]
     Route: 048
  13. VESICARE [Concomitant]
     Route: 048
  14. LOXONIN [Concomitant]
     Route: 048
  15. OMEPRAL [Concomitant]
     Indication: PROPHYLAXIS
     Route: 048
  16. DETRUSITOL [Concomitant]
     Route: 048

REACTIONS (6)
  - Renal impairment [Recovered/Resolved]
  - Hepatic function abnormal [Recovered/Resolved]
  - C-reactive protein increased [Recovered/Resolved]
  - Alanine aminotransferase increased [Recovered/Resolved]
  - Blood urea increased [Recovered/Resolved]
  - C-reactive protein increased [Recovered/Resolved]
